FAERS Safety Report 7244244-2 (Version None)
Quarter: 2011Q1

REPORT INFORMATION
  Report Type: 
  Country: None (occurrence: None)
  Receive Date: 20110125
  Receipt Date: 20110121
  Transmission Date: 20110831
  Serious: Yes (Hospitalization)
  Sender: FDA-Public Use
  Company Number: CA-ABBOTT-11P-028-0699903-00

PATIENT
  Sex: Male
  Weight: 61.744 kg

DRUGS (1)
  1. LUPRON DEPOT [Suspect]
     Indication: PROSTATE CANCER
     Dosage: 3 MONTH DEPOT
     Dates: start: 20080711, end: 20101028

REACTIONS (1)
  - HOSPITALISATION [None]
